FAERS Safety Report 11289292 (Version 1)
Quarter: 2015Q3

REPORT INFORMATION
  Report Type: Spontaneous
  Country: US (occurrence: US)
  Receive Date: 20150721
  Receipt Date: 20150721
  Transmission Date: 20151125
  Serious: No
  Sender: FDA-Public Use
  Company Number: US-GLAXOSMITHKLINE-US2015102801

PATIENT
  Age: 73 Year
  Sex: Female

DRUGS (11)
  1. LOVAZA [Suspect]
     Active Substance: OMEGA-3-ACID ETHYL ESTERS
     Indication: BLOOD CHOLESTEROL INCREASED
     Route: 048
  2. NIACIN. [Concomitant]
     Active Substance: NIACIN
  3. SYNTHROID [Concomitant]
     Active Substance: LEVOTHYROXINE SODIUM
  4. OXYGEN. [Concomitant]
     Active Substance: OXYGEN
  5. DUONEB [Concomitant]
     Active Substance: ALBUTEROL SULFATE\IPRATROPIUM BROMIDE
  6. PROLIA [Concomitant]
     Active Substance: DENOSUMAB
  7. MAXZIDE [Concomitant]
     Active Substance: HYDROCHLOROTHIAZIDE\TRIAMTERENE
  8. AMLODIPINE + BENAZEPRIL [Suspect]
     Active Substance: AMLODIPINE BESYLATE\BENAZEPRIL HYDROCHLORIDE
  9. COMBIVENT [Concomitant]
     Active Substance: ALBUTEROL SULFATE\IPRATROPIUM BROMIDE
  10. TRAMADOL. [Concomitant]
     Active Substance: TRAMADOL
  11. ADVAIR HFA [Concomitant]
     Active Substance: FLUTICASONE PROPIONATE\SALMETEROL XINAFOATE

REACTIONS (2)
  - Abdominal pain upper [Not Recovered/Not Resolved]
  - Diarrhoea [Not Recovered/Not Resolved]

NARRATIVE: CASE EVENT DATE: 20150706
